FAERS Safety Report 9483851 (Version 1)
Quarter: 2013Q3

REPORT INFORMATION
  Report Type: Spontaneous
  Country: US (occurrence: US)
  Receive Date: 20130828
  Receipt Date: 20130828
  Transmission Date: 20140515
  Serious: No
  Sender: FDA-Public Use
  Company Number: US-BAYER-2013-103819

PATIENT
  Sex: Female
  Weight: 65.76 kg

DRUGS (8)
  1. BETASERON [Suspect]
     Dosage: 0.3 MG, UNK
  2. AMPYRA [Suspect]
     Dosage: 10 MG, UNK
  3. CYMBALTA [Concomitant]
     Dosage: 30 MG, UNK
  4. EVISTA [RALOXIFENE HYDROCHLORIDE] [Concomitant]
     Dosage: 60 MG, UNK
  5. DETROL [Concomitant]
     Dosage: 2 MG, UNK
  6. IBU [Concomitant]
     Dosage: 600 MG, UNK
  7. VITAMIN D [Concomitant]
     Dosage: 1000 U, UNK
  8. CALCIUM W/VITAMIN D NOS [Concomitant]

REACTIONS (1)
  - Feeling jittery [Unknown]
